FAERS Safety Report 17907380 (Version 2)
Quarter: 2020Q2

REPORT INFORMATION
  Report Type: Spontaneous
  Country: US (occurrence: US)
  Receive Date: 20200617
  Receipt Date: 20200625
  Transmission Date: 20200714
  Serious: Yes (Other)
  Sender: FDA-Public Use
  Company Number: US-SA-2020SA148238

PATIENT

DRUGS (24)
  1. RIFAMPICIN [Interacting]
     Active Substance: RIFAMPIN
     Dosage: EVENTUALLY INCREASED TO 20 MG/KG.
     Route: 048
  2. DEXAMETHASONE SALT NOT SPECIFIED [Suspect]
     Active Substance: DEXAMETHASONE
     Indication: DISSEMINATED TUBERCULOSIS
     Dosage: 6 MG, Q8H, HIGH DOSE
  3. RUXOLITINIB [Interacting]
     Active Substance: RUXOLITINIB
     Indication: INFLAMMATION
     Dosage: 20 MG, BID
  4. RUXOLITINIB [Interacting]
     Active Substance: RUXOLITINIB
     Dosage: 15 MG MORNING/10 MG EVENING
  5. ETHAMBUTOL [Concomitant]
     Active Substance: ETHAMBUTOL HYDROCHLORIDE
     Indication: TUBERCULOSIS
     Dosage: UNK
  6. DEXAMETHASONE SALT NOT SPECIFIED [Suspect]
     Active Substance: DEXAMETHASONE
     Dosage: TAPER
  7. RIFAMPICIN [Suspect]
     Active Substance: RIFAMPIN
     Indication: TUBERCULOSIS
     Dosage: UNK
     Route: 048
  8. DEXAMETHASONE SALT NOT SPECIFIED [Suspect]
     Active Substance: DEXAMETHASONE
     Dosage: 4 MG, Q8H
  9. LINEZOLID. [Suspect]
     Active Substance: LINEZOLID
     Indication: DISSEMINATED TUBERCULOSIS
     Dosage: UNK
  10. AMPHOTERICIN B. [Concomitant]
     Active Substance: AMPHOTERICIN B
     Indication: FUNGAL TEST POSITIVE
     Dosage: UNK
  11. FLUCONAZOLE. [Concomitant]
     Active Substance: FLUCONAZOLE
     Indication: FUNGAL TEST POSITIVE
     Dosage: UNK
  12. PREDNISONE. [Concomitant]
     Active Substance: PREDNISONE
     Indication: DISSEMINATED TUBERCULOSIS
     Dosage: 70 MG (1 MG/KG)
  13. ISONIAZID. [Suspect]
     Active Substance: ISONIAZID
     Indication: TUBERCULOSIS
     Dosage: UNK
  14. DEXAMETHASONE SALT NOT SPECIFIED [Suspect]
     Active Substance: DEXAMETHASONE
     Dosage: TAPERED OVER THE SUBSEQUENT 2 MONTHS
  15. PYRAZINAMIDE. [Concomitant]
     Active Substance: PYRAZINAMIDE
     Indication: DISSEMINATED TUBERCULOSIS
  16. ETHAMBUTOL [Concomitant]
     Active Substance: ETHAMBUTOL HYDROCHLORIDE
     Indication: DISSEMINATED TUBERCULOSIS
  17. MOXIFLOXACIN. [Concomitant]
     Active Substance: MOXIFLOXACIN
     Indication: DISSEMINATED TUBERCULOSIS
     Dosage: UNK
  18. PREDNISONE. [Concomitant]
     Active Substance: PREDNISONE
     Dosage: TAPER
  19. RIFAMPICIN [Interacting]
     Active Substance: RIFAMPIN
     Indication: DISSEMINATED TUBERCULOSIS
     Dosage: UNK
     Route: 042
  20. ISONIAZID. [Suspect]
     Active Substance: ISONIAZID
     Indication: DISSEMINATED TUBERCULOSIS
     Dosage: HIGH DOSE
  21. PYRAZINAMIDE. [Concomitant]
     Active Substance: PYRAZINAMIDE
     Indication: TUBERCULOSIS
     Dosage: UNK
  22. FLUCONAZOLE. [Concomitant]
     Active Substance: FLUCONAZOLE
     Indication: FUNGAL INFECTION
  23. PREDNISONE. [Concomitant]
     Active Substance: PREDNISONE
     Dosage: 7.5 MG, QD
  24. PREDNISONE. [Concomitant]
     Active Substance: PREDNISONE
     Dosage: 20 MG, BID

REACTIONS (3)
  - Optic neuritis [Recovered/Resolved]
  - Drug interaction [Unknown]
  - Rebound effect [Unknown]
